FAERS Safety Report 17985937 (Version 1)
Quarter: 2020Q3

REPORT INFORMATION
  Report Type: Report from Study
  Country: None (occurrence: GB)
  Receive Date: 20200707
  Receipt Date: 20200707
  Transmission Date: 20201103
  Serious: Yes (Hospitalization)
  Sender: FDA-Public Use
  Company Number: GB-ABBVIE-20K-167-3470567-00

PATIENT
  Age: 57 Year
  Sex: Female

DRUGS (1)
  1. DUODOPA [Suspect]
     Active Substance: CARBIDOPA\LEVODOPA
     Indication: PARKINSON^S DISEASE
     Dosage: 100ML CASSETTE DAILY??5MG/1ML??20MG/1ML
     Route: 050
     Dates: end: 20200701

REACTIONS (2)
  - Unintentional medical device removal [Unknown]
  - Animal attack [Unknown]

NARRATIVE: CASE EVENT DATE: 20200701
